FAERS Safety Report 24439754 (Version 1)
Quarter: 2024Q4

REPORT INFORMATION
  Report Type: Other
  Country: US (occurrence: US)
  Receive Date: 20241015
  Receipt Date: 20241015
  Transmission Date: 20250115
  Serious: Yes (Hospitalization)
  Sender: HLS THERAPEUTICS
  Company Number: US-HLS-202401196

PATIENT
  Age: 56 Year
  Sex: Male

DRUGS (17)
  1. CLOZAPINE [Suspect]
     Active Substance: CLOZAPINE
     Indication: Product used for unknown indication
     Dosage: 01-JUN: 350 MG OF CLOZAPINE.
     Route: 065
  2. CLOZAPINE [Suspect]
     Active Substance: CLOZAPINE
     Indication: Product used for unknown indication
     Dosage: 02-JAN: 550 MG OF CLOZAPINE.
     Route: 065
  3. CLOZAPINE [Suspect]
     Active Substance: CLOZAPINE
     Indication: Product used for unknown indication
     Dosage: 08-DEC: 550 MG OF CLOZAPINE.
     Route: 065
  4. CLOZAPINE [Suspect]
     Active Substance: CLOZAPINE
     Indication: Product used for unknown indication
     Dosage: 17-NOV: 550 MG/DAY.
     Route: 065
  5. CLOZAPINE [Suspect]
     Active Substance: CLOZAPINE
     Indication: Product used for unknown indication
     Dosage: 26-NOV: 500 MG OF CLOZAPINE.
     Route: 065
  6. BENZTROPINE [Concomitant]
     Active Substance: BENZTROPINE
     Indication: Extrapyramidal disorder
     Dosage: 4 MG/DAY
     Route: 065
  7. GLYCOPYRROLATE [Concomitant]
     Active Substance: GLYCOPYRROLATE
     Indication: Drooling
     Dosage: 3 MG/DAY
     Route: 065
  8. GLYCOPYRROLATE [Concomitant]
     Active Substance: GLYCOPYRROLATE
     Indication: Sedation
     Dosage: 3 MG/DAY
     Route: 065
  9. LORAZEPAM [Concomitant]
     Active Substance: LORAZEPAM
     Indication: Mood swings
     Dosage: 2 MG/DAY
     Route: 065
  10. PALIPERIDONE [Concomitant]
     Active Substance: PALIPERIDONE
     Indication: Product used for unknown indication
     Dosage: EVERY 28 DAYS.
     Route: 030
  11. PALIPERIDONE [Concomitant]
     Active Substance: PALIPERIDONE
     Indication: Product used for unknown indication
     Route: 065
  12. PALIPERIDONE [Concomitant]
     Active Substance: PALIPERIDONE
     Indication: Product used for unknown indication
     Dosage: EVERY 28 DAYS.
     Route: 030
     Dates: start: 2022
  13. OXCARBAZEPINE [Concomitant]
     Active Substance: OXCARBAZEPINE
     Indication: Mood swings
     Dosage: 01-JUN: 1200 MG OF OXCARBAZEPINE.
     Route: 065
  14. OXCARBAZEPINE [Concomitant]
     Active Substance: OXCARBAZEPINE
     Indication: Mood swings
     Dosage: 02-JAN: 900 MG OF OXCARBAZEPINE.
     Route: 065
  15. OXCARBAZEPINE [Concomitant]
     Active Substance: OXCARBAZEPINE
     Indication: Mood swings
     Dosage: 08-DEC: 1200 MG OF OXCARBAZEPINE.
     Route: 065
  16. OXCARBAZEPINE [Concomitant]
     Active Substance: OXCARBAZEPINE
     Indication: Mood swings
     Dosage: 17-NOV: 1200 MG OF OXCARBAZEPINE.
     Route: 065
  17. OXCARBAZEPINE [Concomitant]
     Active Substance: OXCARBAZEPINE
     Indication: Mood swings
     Dosage: 26-NOV: 1200 MG OF OXCARBAZEPINE.
     Route: 065

REACTIONS (5)
  - Constipation [Unknown]
  - General physical health deterioration [Unknown]
  - Drooling [Unknown]
  - Extrapyramidal disorder [Unknown]
  - Sedation [Unknown]
